FAERS Safety Report 6722841-8 (Version None)
Quarter: 2010Q2

REPORT INFORMATION
  Report Type: 
  Country: None (occurrence: None)
  Receive Date: 20100512
  Receipt Date: 20100512
  Transmission Date: 20101027
  Serious: Yes (Hospitalization)
  Sender: FDA-Public Use
  Company Number: None

PATIENT
  Age: 46 Year
  Sex: Male
  Weight: 60 kg

DRUGS (5)
  1. PIOGLITAZONE [Suspect]
     Dosage: 1 DAILY BY MOUTH
     Route: 048
     Dates: start: 20100318
  2. RESTORIL [Concomitant]
  3. LORTAB [Concomitant]
  4. PRILOSEC [Concomitant]
  5. MEGACE [Concomitant]

REACTIONS (3)
  - ABDOMINAL PAIN [None]
  - HYPERGLYCAEMIA [None]
  - VOMITING [None]
